FAERS Safety Report 20760834 (Version 2)
Quarter: 2022Q3

REPORT INFORMATION
  Report Type: Report from Study
  Country: ES (occurrence: ES)
  Receive Date: 20220428
  Receipt Date: 20220916
  Transmission Date: 20221027
  Serious: Yes (Hospitalization, Other)
  Sender: FDA-Public Use
  Company Number: ES-JNJFOC-20211022189

PATIENT
  Age: 74 Year
  Sex: Male
  Weight: 43.9 kg

DRUGS (18)
  1. ABIRATERONE ACETATE [Suspect]
     Active Substance: ABIRATERONE ACETATE
     Indication: Prostate cancer metastatic
     Route: 048
     Dates: start: 20210831, end: 20210921
  2. ABIRATERONE ACETATE [Suspect]
     Active Substance: ABIRATERONE ACETATE
     Route: 048
     Dates: start: 20211014
  3. ABIRATERONE ACETATE [Suspect]
     Active Substance: ABIRATERONE ACETATE
     Route: 048
     Dates: start: 20211020
  4. PREDNISONE [Suspect]
     Active Substance: PREDNISONE
     Indication: Prostate cancer metastatic
     Route: 048
     Dates: start: 20210831, end: 20210921
  5. PREDNISONE [Suspect]
     Active Substance: PREDNISONE
     Route: 048
     Dates: start: 20211020
  6. FUROSEMIDE [Concomitant]
     Active Substance: FUROSEMIDE
     Indication: Prophylaxis
     Route: 065
  7. FENTANYL [Concomitant]
     Active Substance: FENTANYL
     Indication: Bone pain
     Route: 065
  8. TAPENTADOL HYDROCHLORIDE [Concomitant]
     Active Substance: TAPENTADOL HYDROCHLORIDE
     Indication: Bone pain
     Route: 065
  9. DEXAMETHASONE ACETATE [Concomitant]
     Active Substance: DEXAMETHASONE ACETATE
     Indication: Antiinflammatory therapy
     Route: 065
     Dates: start: 20210922, end: 20211021
  10. ALACAPSIN [Concomitant]
  11. ELIGARD [Concomitant]
     Active Substance: LEUPROLIDE ACETATE
  12. FLATORIL [CLEBOPRIDE MALATE;SIMETICONE] [Concomitant]
     Indication: Prophylaxis
  13. LOPERAMIDE HYDROCHLORIDE [Concomitant]
     Active Substance: LOPERAMIDE HYDROCHLORIDE
  14. UMECLIDINIUM BROMIDE\VILANTEROL TRIFENATATE [Concomitant]
     Active Substance: UMECLIDINIUM BROMIDE\VILANTEROL TRIFENATATE
     Dosage: 55/22 UG
  15. LORMETAZEPAM [Concomitant]
     Active Substance: LORMETAZEPAM
  16. METAMIZOLE [Concomitant]
     Active Substance: METAMIZOLE
     Indication: Bone pain
     Route: 065
  17. ACETAMINOPHEN [Concomitant]
     Active Substance: ACETAMINOPHEN
  18. NAPROXEN [Concomitant]
     Active Substance: NAPROXEN
     Indication: Bone pain
     Route: 065

REACTIONS (7)
  - Dysphagia [Recovered/Resolved]
  - Thrombocytopenia [Unknown]
  - Hypokalaemia [Unknown]
  - Generalised oedema [Recovered/Resolved]
  - Prostate cancer [Unknown]
  - Hyponatraemia [Unknown]
  - Anaemia [Unknown]

NARRATIVE: CASE EVENT DATE: 20210921
